FAERS Safety Report 16758486 (Version 1)
Quarter: 2019Q3

REPORT INFORMATION
  Report Type: Report from Study
  Country: ES (occurrence: ES)
  Receive Date: 20190830
  Receipt Date: 20190830
  Transmission Date: 20191005
  Serious: Yes (Life-Threatening, Hospitalization)
  Sender: FDA-Public Use
  Company Number: ES-TEVA-2019-ES-1098470

PATIENT
  Age: 65 Year
  Sex: Male

DRUGS (6)
  1. TAMSULOSINA HIDROCLORURO (2751CH) [Suspect]
     Active Substance: TAMSULOSIN HYDROCHLORIDE
     Indication: BENIGN PROSTATIC HYPERPLASIA
     Dosage: 0.4 MG, 1 DAY
     Route: 048
     Dates: start: 20180518, end: 20180621
  2. DEXKETOPROFENO (7312A) [Interacting]
     Active Substance: DEXKETOPROFEN
     Indication: PAIN
     Dosage: 75 MG, 1 DAY
     Route: 048
     Dates: start: 20180615, end: 20180621
  3. DAONIL 5 MG COMPRIMIDOS , 100 COMPRIMIDOS [Concomitant]
     Indication: DIABETES MELLITUS
     Dosage: 100 TABLETS, 15 MG, 1 DAY
     Route: 048
     Dates: end: 20180621
  4. CLEXANE 4.000 UI (40 MG)/ 0,4 ML  SOLUCION INYECTABLE EN JERINGA PRECA [Concomitant]
     Indication: PROPHYLAXIS
     Dosage: 4,000 IU (40 MG) / 0.4 ML; 2 0.4 ML PRE-FILLED SYRINGES
     Route: 058
     Dates: start: 20180615, end: 20180615
  5. ENALAPRIL MALEATO (2142MA) [Interacting]
     Active Substance: ENALAPRIL MALEATE
     Indication: HYPERTENSION
     Dosage: 20 MG, 1 DAY
     Route: 048
     Dates: end: 20180621
  6. METFORMINA (1359A) [Concomitant]
     Active Substance: METFORMIN HYDROCHLORIDE
     Indication: DIABETES MELLITUS
     Dosage: 2.55 GRAM, 1 DAY
     Route: 048
     Dates: end: 20180621

REACTIONS (3)
  - Acute kidney injury [Recovering/Resolving]
  - Drug interaction [Unknown]
  - Hyperkalaemia [Recovered/Resolved]

NARRATIVE: CASE EVENT DATE: 20180620
